FAERS Safety Report 25868168 (Version 1)
Quarter: 2025Q4

REPORT INFORMATION
  Report Type: Report from Study
  Country: CA (occurrence: CA)
  Receive Date: 20251001
  Receipt Date: 20251001
  Transmission Date: 20260117
  Serious: Yes (Other)
  Sender: ALEXION PHARMACEUTICALS
  Company Number: CA-AstraZeneca-CH-00942102A

PATIENT
  Sex: Male

DRUGS (1)
  1. DURVALUMAB [Suspect]
     Active Substance: DURVALUMAB
     Indication: Small cell lung cancer limited stage
     Dosage: 1500 MILLIGRAM, Q4W
     Route: 065
     Dates: start: 20250509

REACTIONS (3)
  - Febrile neutropenia [Unknown]
  - Congenital aplasia [Unknown]
  - Myelodysplastic syndrome [Unknown]
